FAERS Safety Report 13653970 (Version 1)
Quarter: 2017Q2

REPORT INFORMATION
  Report Type: Spontaneous
  Country: FR (occurrence: FR)
  Receive Date: 20170614
  Receipt Date: 20170614
  Transmission Date: 20170830
  Serious: Yes (Hospitalization, Other)
  Sender: FDA-Public Use
  Company Number: FR-PFIZER INC-2017250794

PATIENT
  Age: 80 Year
  Sex: Male

DRUGS (12)
  1. DALACINE [Suspect]
     Active Substance: CLINDAMYCIN HYDROCHLORIDE
     Indication: STAPHYLOCOCCAL INFECTION
     Dosage: 600 MG, 3X/DAY
     Route: 042
     Dates: start: 20170401, end: 20170415
  2. BISOPROLOL FUMARATE. [Concomitant]
     Active Substance: BISOPROLOL FUMARATE
     Dosage: 1.25 MG ONCE A DAY, IN THE MORNING
     Route: 048
  3. PANTOPRAZOLE [Concomitant]
     Active Substance: PANTOPRAZOLE
     Dosage: 20 MG ONCE A DAY IN THE EVENING
     Route: 048
  4. LOVENOX [Concomitant]
     Active Substance: ENOXAPARIN SODIUM
     Dosage: 1 DF, 2X/DAY
     Route: 058
  5. EZETROL [Concomitant]
     Active Substance: EZETIMIBE
     Dosage: 10 MG, DAILY
     Route: 048
  6. FLECAINE LP [Concomitant]
     Active Substance: FLECAINIDE
     Dosage: 200 MG, DAILY
     Route: 048
  7. CRESTOR [Concomitant]
     Active Substance: ROSUVASTATIN CALCIUM
     Dosage: 10 MG, DAILY
     Route: 048
  8. LOSARTAN POTASSIUM AND HYDROCHLOROTHIAZIDE [Concomitant]
     Active Substance: HYDROCHLOROTHIAZIDE\LOSARTAN POTASSIUM
     Dosage: 1 DF, DAILY
     Route: 048
     Dates: end: 201704
  9. DIAMICRON [Concomitant]
     Active Substance: GLICLAZIDE
     Dosage: 60 MG TWICE DAILY (MORNING AND EVENING)
     Route: 048
     Dates: end: 201704
  10. LOSARTAN POTASSIUM AND HYDROCHLOROTHIAZIDE [Concomitant]
     Active Substance: HYDROCHLOROTHIAZIDE\LOSARTAN POTASSIUM
     Dosage: 1 DF, DAILY
     Route: 048
     Dates: start: 201704
  11. DIAMICRON [Concomitant]
     Active Substance: GLICLAZIDE
     Dosage: 60 MG, DAILY
     Route: 048
     Dates: start: 201704
  12. AMLOR [Concomitant]
     Active Substance: AMLODIPINE BESYLATE
     Dosage: 5 MG, DAILY
     Route: 048

REACTIONS (3)
  - Acute kidney injury [Recovering/Resolving]
  - Hepatitis cholestatic [Recovering/Resolving]
  - Rash [Recovering/Resolving]

NARRATIVE: CASE EVENT DATE: 201704
